FAERS Safety Report 4825799-1 (Version None)
Quarter: 2005Q4

REPORT INFORMATION
  Report Type: 
  Country: None (occurrence: None)
  Receive Date: 20051111
  Receipt Date: 20051102
  Transmission Date: 20060501
  Serious: Yes (Other)
  Sender: FDA-Public Use
  Company Number: JP-JPN-A20052646

PATIENT
  Sex: Female

DRUGS (4)
  1. ZIDOVUDINE [Suspect]
     Indication: HIV INFECTION
  2. ZIDOVUDINE [Concomitant]
     Indication: ANTIVIRAL PROPHYLAXIS
     Route: 048
  3. ZERIT [Concomitant]
     Indication: HIV INFECTION
  4. VIRACEPT [Concomitant]
     Indication: HIV INFECTION

REACTIONS (3)
  - ANAEMIA [None]
  - DRUG EXPOSURE DURING PREGNANCY [None]
  - GASTROINTESTINAL MOTILITY DISORDER [None]
